FAERS Safety Report 8978030 (Version 1)
Quarter: 2012Q4

REPORT INFORMATION
  Report Type: 
  Country: US (occurrence: US)
  Receive Date: 20121220
  Receipt Date: 20121220
  Transmission Date: 20130627
  Serious: Yes (Hospitalization, Other)
  Sender: FDA-Public Use
  Company Number: US-MYLANLABS-2012S1025614

PATIENT
  Age: 55 Year
  Sex: Female
  Weight: 119.3 kg

DRUGS (5)
  1. CLOZAPINE TABLETS [Suspect]
     Indication: PSYCHOTIC DISORDER
     Route: 048
     Dates: start: 20081006
  2. PROZAC [Concomitant]
  3. ABILIFY [Concomitant]
  4. CORGARD [Concomitant]
  5. METFORMIN [Concomitant]
     Indication: DIABETES MELLITUS

REACTIONS (1)
  - Oesophageal varices haemorrhage [Recovered/Resolved]
